FAERS Safety Report 6258558-6 (Version None)
Quarter: 2009Q3

REPORT INFORMATION
  Report Type: 
  Country: None (occurrence: None)
  Receive Date: 20090707
  Receipt Date: 20090629
  Transmission Date: 20100115
  Serious: Yes (Hospitalization)
  Sender: FDA-Public Use
  Company Number: FR-ROCHE-636817

PATIENT
  Age: 76 Year
  Sex: Female
  Weight: 60 kg

DRUGS (2)
  1. BONIVA [Suspect]
     Indication: OSTEOPOROSIS
     Route: 048
     Dates: end: 20090601
  2. FIXICAL VITAMIN D3 [Concomitant]
     Indication: OSTEOPOROSIS
     Dosage: DRUG: FIXICAL D3
     Route: 048

REACTIONS (2)
  - BONE DENSITY DECREASED [None]
  - BREAST CANCER [None]
